FAERS Safety Report 20099923 (Version 1)
Quarter: 2021Q4

REPORT INFORMATION
  Report Type: Report from Study
  Country: US (occurrence: US)
  Receive Date: 20211123
  Receipt Date: 20211123
  Transmission Date: 20220304
  Serious: No
  Sender: FDA-Public Use
  Company Number: US-NOVARTISTESTPH-NVSC2021US267113

PATIENT
  Sex: Female

DRUGS (1)
  1. MAYZENT [Suspect]
     Active Substance: SIPONIMOD
     Indication: Multiple sclerosis relapse
     Dosage: 2 MG
     Route: 048

REACTIONS (4)
  - Memory impairment [Unknown]
  - Pain [Unknown]
  - Magnetic resonance imaging abnormal [Unknown]
  - Drug ineffective [Unknown]
